FAERS Safety Report 16599846 (Version 4)
Quarter: 2019Q3

REPORT INFORMATION
  Report Type: Report from Study
  Country: FR (occurrence: FR)
  Receive Date: 20190720
  Receipt Date: 20190809
  Transmission Date: 20191004
  Serious: Yes (Hospitalization, Other)
  Sender: FDA-Public Use
  Company Number: PHHY2019FR158493

PATIENT
  Age: 11 Year
  Sex: Male
  Weight: 55 kg

DRUGS (14)
  1. CYCLOPHOSPHAMIDE. [Suspect]
     Active Substance: CYCLOPHOSPHAMIDE
     Dosage: 200 MG/M2, (DAYS 1-5 EACH 21 DAY CYCLE)
     Route: 042
     Dates: start: 20190506, end: 20190531
  2. VENETOCLAX. [Suspect]
     Active Substance: VENETOCLAX
     Dosage: 400 MG, QD
     Route: 048
     Dates: start: 20190320, end: 20190401
  3. HYCAMTIN [Suspect]
     Active Substance: TOPOTECAN HYDROCHLORIDE
     Indication: REFRACTORY CANCER
     Dosage: 0.53 MG/M2, (DAYS 1-5 EACH 21 DAY CYCLE)
     Route: 042
     Dates: start: 20190321, end: 20190419
  4. CYCLOPHOSPHAMIDE. [Suspect]
     Active Substance: CYCLOPHOSPHAMIDE
     Dosage: 162.5 MG/M2, (DAYS 1-5 OF EACH 21 DAY CYCLE)
     Route: 042
     Dates: start: 20190624
  5. VENETOCLAX. [Suspect]
     Active Substance: VENETOCLAX
     Dosage: 400 MG, QD
     Route: 048
     Dates: start: 20190405, end: 20190515
  6. VENETOCLAX. [Suspect]
     Active Substance: VENETOCLAX
     Dosage: 200 MG, QD
     Route: 048
     Dates: start: 20190617
  7. NORMAL SALINE [Concomitant]
     Active Substance: SODIUM CHLORIDE
     Indication: PROPHYLAXIS
     Dosage: 0.9 %, UNK (6 DAYS) (3120ML)
     Route: 042
     Dates: start: 20190319, end: 20190325
  8. ALLOPURINOL. [Concomitant]
     Active Substance: ALLOPURINOL
     Indication: PROPHYLAXIS
     Dosage: 100 MG, QD
     Route: 048
     Dates: start: 20190319, end: 20190325
  9. HYCAMTIN [Suspect]
     Active Substance: TOPOTECAN HYDROCHLORIDE
     Dosage: 0.59 MG/M2, (DAYS 1-5 OF EACH 21 DAY CYCLE)
     Route: 042
     Dates: start: 20190506, end: 20190531
  10. VENETOCLAX. [Suspect]
     Active Substance: VENETOCLAX
     Dosage: 400 MG, QD
     Route: 048
     Dates: start: 20190520, end: 20190605
  11. LOPERAMIDE [Concomitant]
     Active Substance: LOPERAMIDE
     Indication: DIARRHOEA
     Dosage: 2 MG, QD
     Route: 048
     Dates: start: 20190413
  12. HYCAMTIN [Suspect]
     Active Substance: TOPOTECAN HYDROCHLORIDE
     Dosage: 0.47 MG/M2, (DAYS 1-5 OF EACH 21 DAY CYCLE)
     Route: 042
     Dates: start: 20190624
  13. VENETOCLAX. [Suspect]
     Active Substance: VENETOCLAX
     Indication: REFRACTORY CANCER
     Dosage: 200 MG, QD
     Route: 048
     Dates: start: 20190319, end: 20190319
  14. CYCLOPHOSPHAMIDE. [Suspect]
     Active Substance: CYCLOPHOSPHAMIDE
     Indication: REFRACTORY CANCER
     Dosage: 175 MG/M2, (DAYS 1-5 EACH CYCLE)
     Route: 042
     Dates: start: 20190321, end: 20190419

REACTIONS (5)
  - Pyrexia [Unknown]
  - Neutropenia [Not Recovered/Not Resolved]
  - Anaemia [Unknown]
  - Febrile bone marrow aplasia [Recovered/Resolved]
  - Leukopenia [Not Recovered/Not Resolved]

NARRATIVE: CASE EVENT DATE: 20190402
